FAERS Safety Report 24465299 (Version 1)
Quarter: 2024Q4

REPORT INFORMATION
  Report Type: Report from Study
  Country: US (occurrence: US)
  Receive Date: 20241018
  Receipt Date: 20241018
  Transmission Date: 20250114
  Serious: No
  Sender: ROCHE
  Company Number: US-ROCHE-3527882

PATIENT

DRUGS (5)
  1. XOLAIR [Suspect]
     Active Substance: OMALIZUMAB
     Indication: Product used for unknown indication
     Route: 065
  2. RINVOQ [Suspect]
     Active Substance: UPADACITINIB
     Indication: Product used for unknown indication
     Route: 065
     Dates: start: 20211005
  3. CYCLOSPORINE [Concomitant]
     Active Substance: CYCLOSPORINE
  4. PREDNISONE [Concomitant]
     Active Substance: PREDNISONE
  5. DUPIXENT [Concomitant]
     Active Substance: DUPILUMAB

REACTIONS (9)
  - Erythema [Unknown]
  - Pruritus [Unknown]
  - Urticaria [Unknown]
  - Contusion [Unknown]
  - Scratch [Unknown]
  - Scab [Unknown]
  - Rash [Unknown]
  - Drug ineffective [Unknown]
  - Anxiety [Unknown]
